FAERS Safety Report 7308353-1 (Version None)
Quarter: 2011Q1

REPORT INFORMATION
  Report Type: 
  Country: None (occurrence: None)
  Receive Date: 20110223
  Receipt Date: 20110216
  Transmission Date: 20110831
  Serious: Yes (Other)
  Sender: FDA-Public Use
  Company Number: B0700955A

PATIENT
  Sex: Male

DRUGS (2)
  1. CALONAL [Concomitant]
     Route: 048
     Dates: start: 20110214
  2. RELENZA [Suspect]
     Indication: INFLUENZA
     Dosage: 20MG PER DAY
     Route: 055
     Dates: start: 20110214

REACTIONS (1)
  - ABNORMAL BEHAVIOUR [None]
